FAERS Safety Report 9132854 (Version 1)
Quarter: 2013Q1

REPORT INFORMATION
  Report Type: Spontaneous
  Country: US (occurrence: US)
  Receive Date: 20130301
  Receipt Date: 20130301
  Transmission Date: 20140127
  Serious: Yes (Hospitalization, Other)
  Sender: FDA-Public Use
  Company Number: PHHY2013US018582

PATIENT
  Age: 62 Year
  Sex: Male

DRUGS (3)
  1. CITALOPRAM [Suspect]
     Indication: DEPRESSION
     Dosage: 40 MG, UNK
  2. BUPROPION [Interacting]
     Indication: DEPRESSION
     Dosage: 150 MG, BID
  3. TRAMADOL [Interacting]
     Indication: MUSCULOSKELETAL PAIN
     Dosage: 50 MG, TID

REACTIONS (11)
  - Serotonin syndrome [Recovered/Resolved]
  - Tremor [Recovered/Resolved]
  - Hyperhidrosis [Recovered/Resolved]
  - Anxiety [Recovered/Resolved]
  - Tachycardia [Recovered/Resolved]
  - Blood pressure increased [Recovered/Resolved]
  - Clonus [Recovered/Resolved]
  - Mental status changes [Recovered/Resolved]
  - Autonomic nervous system imbalance [Recovered/Resolved]
  - Neuromyopathy [Recovered/Resolved]
  - Drug interaction [Unknown]
